FAERS Safety Report 7141051-6 (Version None)
Quarter: 2010Q4

REPORT INFORMATION
  Report Type: 
  Country: None (occurrence: None)
  Receive Date: 20101201
  Receipt Date: 20101201
  Transmission Date: 20110411
  Serious: Yes (Hospitalization)
  Sender: FDA-Public Use
  Company Number: None

PATIENT
  Sex: Female
  Weight: 80 kg

DRUGS (3)
  1. CARBOPLATIN [Suspect]
     Dosage: 630 MG
     Dates: end: 20101119
  2. TAXOTERE [Suspect]
     Dosage: 126 MG
     Dates: end: 20101119
  3. HERCEPTIN [Suspect]
     Dosage: 126 MG
     Dates: end: 20101119

REACTIONS (2)
  - NAUSEA [None]
  - VOMITING [None]
